FAERS Safety Report 16009585 (Version 2)
Quarter: 2019Q1

REPORT INFORMATION
  Report Type: Spontaneous
  Country: CA (occurrence: CA)
  Receive Date: 20190225
  Receipt Date: 20190312
  Transmission Date: 20190418
  Serious: Yes (Other)
  Sender: FDA-Public Use
  Company Number: CA-ROCHE-2268594

PATIENT
  Age: 39 Year
  Sex: Female

DRUGS (6)
  1. PULMICORT TURBUHALER [Concomitant]
     Active Substance: BUDESONIDE
     Indication: PRODUCT USED FOR UNKNOWN INDICATION
     Dosage: 200 UG, BID
     Route: 065
     Dates: start: 201805
  2. XOLAIR [Suspect]
     Active Substance: OMALIZUMAB
     Indication: ASTHMA
     Route: 058
     Dates: start: 20181101
  3. VENTOLIN [Concomitant]
     Active Substance: ALBUTEROL SULFATE
     Indication: PRODUCT USED FOR UNKNOWN INDICATION
     Route: 065
  4. ITRACONAZOLE. [Concomitant]
     Active Substance: ITRACONAZOLE
     Indication: PRODUCT USED FOR UNKNOWN INDICATION
     Dosage: 2 DF, QD
     Route: 048
     Dates: start: 2016
  5. SPIRIVA [Concomitant]
     Active Substance: TIOTROPIUM BROMIDE MONOHYDRATE
     Indication: PRODUCT USED FOR UNKNOWN INDICATION
     Dosage: 2 DF, BID
     Route: 055
     Dates: start: 2016
  6. SYMBICORT [Concomitant]
     Active Substance: BUDESONIDE\FORMOTEROL FUMARATE DIHYDRATE
     Indication: PRODUCT USED FOR UNKNOWN INDICATION
     Dosage: 1 DF, BID
     Route: 055
     Dates: start: 201806

REACTIONS (8)
  - Night sweats [Unknown]
  - Arrhythmia [Recovered/Resolved]
  - Depression [Recovered/Resolved]
  - Dizziness [Unknown]
  - Musculoskeletal stiffness [Unknown]
  - Pain in extremity [Unknown]
  - Fatigue [Unknown]
  - Palpitations [Unknown]

NARRATIVE: CASE EVENT DATE: 20181101
